FAERS Safety Report 5406132-3 (Version None)
Quarter: 2007Q3

REPORT INFORMATION
  Report Type: 
  Country: None (occurrence: None)
  Receive Date: 20070802
  Receipt Date: 20070802
  Transmission Date: 20080115
  Serious: Yes (Life-Threatening, Hospitalization)
  Sender: FDA-Public Use
  Company Number: None

PATIENT
  Age: 38 Year
  Sex: Female
  Weight: 149.687 kg

DRUGS (2)
  1. DEFINITY [Suspect]
     Indication: ECHOCARDIOGRAM
     Dosage: 1.3CC IV
     Route: 042
     Dates: start: 20070726, end: 20070726
  2. DEFINITY [Suspect]
     Indication: SCAN WITH CONTRAST
     Dosage: 1.3CC IV
     Route: 042
     Dates: start: 20070726, end: 20070726

REACTIONS (5)
  - ANXIETY [None]
  - CHEST DISCOMFORT [None]
  - DYSPNOEA [None]
  - HYPERHIDROSIS [None]
  - OXYGEN SATURATION DECREASED [None]
